FAERS Safety Report 24738392 (Version 4)
Quarter: 2025Q2

REPORT INFORMATION
  Report Type: Spontaneous
  Country: US (occurrence: US)
  Receive Date: 20241216
  Receipt Date: 20250626
  Transmission Date: 20250716
  Serious: No
  Sender: PFIZER
  Company Number: US-PFIZER INC-202400317939

PATIENT
  Age: 4 Month
  Sex: Male

DRUGS (2)
  1. GENOTROPIN [Suspect]
     Active Substance: SOMATROPIN
     Indication: Growth hormone deficiency
     Dosage: 0.2 MG, DAILY
     Dates: start: 202407, end: 202407
  2. GENOTROPIN [Suspect]
     Active Substance: SOMATROPIN
     Dates: start: 202407

REACTIONS (3)
  - Device leakage [Unknown]
  - Device use error [Unknown]
  - Drug dose omission by device [Unknown]

NARRATIVE: CASE EVENT DATE: 20240101
